FAERS Safety Report 16337714 (Version 3)
Quarter: 2019Q3

REPORT INFORMATION
  Report Type: Spontaneous
  Country: JP (occurrence: JP)
  Receive Date: 20190521
  Receipt Date: 20190702
  Transmission Date: 20191004
  Serious: Yes (Hospitalization, Other)
  Sender: FDA-Public Use
  Company Number: PHJP2019JP003954

PATIENT
  Age: 82 Year
  Sex: Male

DRUGS (2)
  1. TAFINLAR [Suspect]
     Active Substance: DABRAFENIB MESYLATE
     Indication: MALIGNANT MELANOMA
     Dosage: 300 MG, UNK
     Route: 048
     Dates: start: 20190308, end: 20190412
  2. MEKINIST [Suspect]
     Active Substance: TRAMETINIB DIMETHYL SULFOXIDE
     Indication: MALIGNANT MELANOMA
     Dosage: 2 MG, UNK
     Route: 048
     Dates: start: 20190308, end: 20190412

REACTIONS (11)
  - Thrombocytopenia [Unknown]
  - Sepsis [Recovered/Resolved]
  - Febrile neutropenia [Recovered/Resolved]
  - Pollakiuria [Not Recovered/Not Resolved]
  - Blood pressure increased [Unknown]
  - Blood alkaline phosphatase increased [Not Recovered/Not Resolved]
  - Hyperthermia [Unknown]
  - Rhabdomyolysis [Recovered/Resolved]
  - Anaemia [Unknown]
  - Ejection fraction decreased [Unknown]
  - Bacteraemia [Recovered/Resolved]

NARRATIVE: CASE EVENT DATE: 20190315
